FAERS Safety Report 19646210 (Version 2)
Quarter: 2022Q1

REPORT INFORMATION
  Report Type: Spontaneous
  Country: US (occurrence: US)
  Receive Date: 20210802
  Receipt Date: 20220121
  Transmission Date: 20220423
  Serious: Yes (Other)
  Sender: FDA-Public Use
  Company Number: US-GLAXOSMITHKLINE-US2021GSK163958

PATIENT
  Sex: Female
  Weight: 81.633 kg

DRUGS (7)
  1. RANITIDINE HYDROCHLORIDE [Suspect]
     Active Substance: RANITIDINE HYDROCHLORIDE
     Indication: Throat clearing
     Dosage: 150 MG
     Route: 065
     Dates: start: 201703, end: 202001
  2. RANITIDINE HYDROCHLORIDE [Suspect]
     Active Substance: RANITIDINE HYDROCHLORIDE
     Dosage: 150 MG, QD
     Route: 065
     Dates: start: 201702, end: 202001
  3. RANITIDINE HYDROCHLORIDE [Suspect]
     Active Substance: RANITIDINE HYDROCHLORIDE
     Dosage: 150 MG, QD (1 TABLET BY MOUTH AT BEDTIME)
     Route: 048
     Dates: start: 20160622, end: 20200202
  4. RANITIDINE HYDROCHLORIDE [Suspect]
     Active Substance: RANITIDINE HYDROCHLORIDE
     Indication: Throat clearing
     Dosage: 150 MG
     Route: 065
     Dates: start: 201703, end: 202001
  5. RANITIDINE HYDROCHLORIDE [Suspect]
     Active Substance: RANITIDINE HYDROCHLORIDE
     Dosage: 150 MG, QD
     Route: 065
     Dates: start: 201702, end: 202001
  6. RANITIDINE [Suspect]
     Active Substance: RANITIDINE
     Indication: Throat clearing
     Dosage: 150 MG
     Route: 065
     Dates: start: 201703, end: 202001
  7. RANITIDINE [Suspect]
     Active Substance: RANITIDINE
     Indication: Throat clearing
     Dosage: 150 MG
     Route: 065
     Dates: start: 201703, end: 202001

REACTIONS (2)
  - Breast cancer [Unknown]
  - Breast calcifications [Unknown]
